FAERS Safety Report 20076558 (Version 1)
Quarter: 2021Q4

REPORT INFORMATION
  Report Type: Report from Study
  Country: US (occurrence: US)
  Receive Date: 20211116
  Receipt Date: 20211116
  Transmission Date: 20220303
  Serious: Yes (Hospitalization)
  Sender: FDA-Public Use
  Company Number: US-EXELIXIS-CABO-21046042

PATIENT
  Sex: Male

DRUGS (2)
  1. CABOMETYX [Suspect]
     Active Substance: CABOZANTINIB S-MALATE
     Indication: Chronic inflammatory demyelinating polyradiculoneuropathy
     Dosage: 60 MG, QD
     Route: 048
     Dates: start: 20200630
  2. CABOMETYX [Suspect]
     Active Substance: CABOZANTINIB S-MALATE
     Dosage: 60 MG, QD
     Route: 048

REACTIONS (3)
  - Abdominal discomfort [Unknown]
  - Vomiting [Unknown]
  - Off label use [Unknown]
